FAERS Safety Report 7767741-X (Version None)
Quarter: 2011Q3

REPORT INFORMATION
  Report Type: 
  Country: None (occurrence: None)
  Receive Date: 20110922
  Receipt Date: 20110418
  Transmission Date: 20111222
  Serious: Yes (Other)
  Sender: FDA-Public Use
  Company Number: US-ASTRAZENECA-2009UW20570

PATIENT
  Age: 43 Year
  Sex: Female
  Weight: 124.7 kg

DRUGS (12)
  1. SEROQUEL [Suspect]
     Route: 048
     Dates: start: 20030712, end: 20070425
  2. SEROQUEL [Suspect]
     Route: 048
     Dates: start: 20030712, end: 20070425
  3. HYDROYZIN [Concomitant]
     Indication: DEPRESSION
     Dates: start: 20050101
  4. SIMVASTATIN [Concomitant]
     Indication: BLOOD CHOLESTEROL INCREASED
     Dates: start: 20080101
  5. ZIPRASIDONE HYDROCHLORIDE [Concomitant]
     Dates: start: 20100101
  6. SEROQUEL [Suspect]
     Indication: SLEEP DISORDER
     Route: 048
     Dates: start: 20030101, end: 20080407
  7. BENZTROPINE MESYLATE [Concomitant]
     Indication: DEPRESSION
     Dates: start: 20050101
  8. DOXEPIN [Concomitant]
     Indication: DEPRESSION
     Dosage: 50-100MG
     Dates: start: 20050101
  9. SIMVASTATIN [Concomitant]
     Indication: HYPERLIPIDAEMIA
     Dates: start: 20080101
  10. OLANZAPINE [Concomitant]
     Dates: start: 20100101
  11. SEROQUEL [Suspect]
     Indication: DEPRESSION
     Route: 048
     Dates: start: 20030101, end: 20080407
  12. DOXEPIN [Concomitant]
     Indication: BIPOLAR DISORDER
     Dosage: 50-100MG
     Dates: start: 20050101

REACTIONS (8)
  - TYPE 2 DIABETES MELLITUS [None]
  - DYSKINESIA [None]
  - HYPERLIPIDAEMIA [None]
  - BLOOD CHOLESTEROL INCREASED [None]
  - MOVEMENT DISORDER [None]
  - TARDIVE DYSKINESIA [None]
  - PANCREATITIS [None]
  - PALPITATIONS [None]
